FAERS Safety Report 12548245 (Version 1)
Quarter: 2016Q3

REPORT INFORMATION
  Report Type: Spontaneous
  Country: US (occurrence: None)
  Receive Date: 20160711
  Receipt Date: 20160711
  Transmission Date: 20161109
  Serious: Yes (Other)
  Sender: FDA-Public Use
  Company Number: None

PATIENT
  Age: 27 Year
  Sex: Male

DRUGS (5)
  1. BUDOSEMIDE [Concomitant]
  2. OMEPRAZOLE. [Concomitant]
     Active Substance: OMEPRAZOLE
  3. VICOPROFEN [Concomitant]
     Active Substance: HYDROCODONE BITARTRATE\IBUPROFEN
  4. HUMIRA [Suspect]
     Active Substance: ADALIMUMAB
     Indication: CROHN^S DISEASE
     Dosage: 40MG EVERY OTHER WEEK
     Route: 058
     Dates: start: 20150521
  5. URSODIOL. [Concomitant]
     Active Substance: URSODIOL

REACTIONS (9)
  - Arthralgia [None]
  - Pain [None]
  - Dizziness [None]
  - Headache [None]
  - Back pain [None]
  - Pain in extremity [None]
  - Pyrexia [None]
  - Pneumonia [None]
  - Swelling [None]

NARRATIVE: CASE EVENT DATE: 20160414
